FAERS Safety Report 22371811 (Version 1)
Quarter: 2023Q2

REPORT INFORMATION
  Report Type: Spontaneous
  Country: US (occurrence: US)
  Receive Date: 20230526
  Receipt Date: 20230526
  Transmission Date: 20230721
  Serious: Yes (Hospitalization)
  Sender: FDA-Public Use
  Company Number: US-MYLANLABS-2023M1053729

PATIENT
  Age: 40 Year
  Sex: Male

DRUGS (1)
  1. LOPERAMIDE [Suspect]
     Active Substance: LOPERAMIDE
     Indication: Drug use disorder
     Dosage: 2 MILLIGRAM, QD (48-84 TABLETS DAILY; OVER THE PAST SEVERAL MONTHS)
     Route: 048

REACTIONS (4)
  - Intentional overdose [Unknown]
  - Ventricular tachycardia [Unknown]
  - Electrocardiogram QT prolonged [Unknown]
  - Off label use [Unknown]
